FAERS Safety Report 5209821-9 (Version None)
Quarter: 2006Q4

REPORT INFORMATION
  Report Type: 
  Country: None (occurrence: None)
  Receive Date: 20061130
  Receipt Date: 20051019
  Transmission Date: 20070319
  Serious: Yes (Other)
  Sender: FDA-Public Use
  Company Number: 2005127977

PATIENT
  Age: 79 Year
  Sex: Male

DRUGS (6)
  1. ZYVOX [Suspect]
     Indication: ILL-DEFINED DISORDER
     Dosage: 1200 MG (600 MG, 2 IN 1 D), ORAL
     Route: 048
     Dates: start: 20050907, end: 20050912
  2. VANCOMYCIN [Concomitant]
  3. ALL OTHER THERAPEUTIC PRODUCTS (ALL OTHER THERAPEUTIC PRODUCTS) [Concomitant]
  4. FLUCONAZOLE [Concomitant]
  5. AMIODARONE HCL [Concomitant]
  6. VICODIN [Concomitant]

REACTIONS (3)
  - HAEMATOCRIT DECREASED [None]
  - PLATELET COUNT DECREASED [None]
  - TRANSFUSION REACTION [None]
